FAERS Safety Report 4842468-2 (Version None)
Quarter: 2005Q4

REPORT INFORMATION
  Report Type: 
  Country: None (occurrence: None)
  Receive Date: 20051129
  Receipt Date: 20051111
  Transmission Date: 20060501
  Serious: Yes (Disabling, Other)
  Sender: FDA-Public Use
  Company Number: US200511000101

PATIENT
  Age: 67 Year
  Sex: Male

DRUGS (5)
  1. HUMALOG [Suspect]
     Indication: DIABETES MELLITUS
     Dosage: 2 U, AS NEEDED
     Dates: start: 19960101
  2. HUMULIN N [Suspect]
     Indication: DIABETES MELLITUS
     Dosage: 30 U DAILY (1/D)
     Dates: start: 19820101
  3. HUMULIN R [Suspect]
     Indication: DIABETES MELLITUS
     Dates: start: 19820101, end: 19960101
  4. ILETIN PORK NPH(INSULIN, ANIMAL PORK NPH) VIAL [Suspect]
     Indication: DIABETES MELLITUS
     Dates: start: 19490101, end: 19820101
  5. LETIN PORK REGULAR(INSULIN, ANIMAL PORK REGULAR) VIAL [Suspect]
     Indication: DIABETES MELLITUS
     Dates: start: 19490101, end: 19820101

REACTIONS (4)
  - BLINDNESS [None]
  - BLOOD GLUCOSE DECREASED [None]
  - BLOOD GLUCOSE INCREASED [None]
  - DIABETIC RETINOPATHY [None]
